FAERS Safety Report 9031897 (Version 1)
Quarter: 2013Q1

REPORT INFORMATION
  Report Type: Spontaneous
  Country: US (occurrence: US)
  Receive Date: 20130125
  Receipt Date: 20130125
  Transmission Date: 20140127
  Serious: Yes (Hospitalization)
  Sender: FDA-Public Use
  Company Number: US-ELI_LILLY_AND_COMPANY-US201301004256

PATIENT
  Age: 74 Year
  Sex: Female

DRUGS (12)
  1. FORTEO [Suspect]
     Indication: OSTEOPOROSIS
     Dosage: 20 UG, QD
     Dates: start: 201103
  2. FORTEO [Suspect]
     Dosage: 20 UG, QD
     Dates: end: 20121215
  3. LEVOTHYROXINE [Concomitant]
  4. VYTORIN [Concomitant]
  5. ASPIRIN [Concomitant]
     Dosage: 81 MG, UNK
  6. VITAMIN D3 [Concomitant]
  7. TRAMADOL HYDROCHLORIDE AND ACETAMINOPHEN [Concomitant]
  8. ALEVE [Concomitant]
  9. IRON [Concomitant]
  10. LASIX                              /00032601/ [Concomitant]
     Dosage: UNK, PRN, NOT MORE THAN 2/W
  11. PROTONIX [Concomitant]
  12. PREDNISONE [Concomitant]
     Dosage: UNK

REACTIONS (2)
  - Septic shock [Unknown]
  - Septic shock [Unknown]
